FAERS Safety Report 16971423 (Version 1)
Quarter: 2019Q4

REPORT INFORMATION
  Report Type: Spontaneous
  Country: US (occurrence: US)
  Receive Date: 20191028
  Receipt Date: 20191028
  Transmission Date: 20200122
  Serious: Yes (Other)
  Sender: FDA-Public Use
  Company Number: None

PATIENT
  Age: 70 Year
  Sex: Female
  Weight: 71.1 kg

DRUGS (6)
  1. VITAMIN D [Concomitant]
     Active Substance: VITAMIN D NOS
  2. GLUCOSAMIND CONDROITIN [Concomitant]
  3. FISH OIL [Concomitant]
     Active Substance: FISH OIL
  4. MULTI VITAMIN [Concomitant]
     Active Substance: VITAMINS
  5. CALCIUM [Concomitant]
     Active Substance: CALCIUM
  6. PIQRAY [Suspect]
     Active Substance: ALPELISIB
     Indication: BREAST CANCER STAGE IV
     Dosage: ?          QUANTITY:1 TABLET(S);?
     Route: 048
     Dates: start: 20191014, end: 20191016

REACTIONS (5)
  - Lethargy [None]
  - Dehydration [None]
  - Nausea [None]
  - Vomiting [None]
  - Hyperglycaemia [None]

NARRATIVE: CASE EVENT DATE: 20191015
